FAERS Safety Report 8582165-3 (Version None)
Quarter: 2012Q3

REPORT INFORMATION
  Report Type: 
  Country: None (occurrence: None)
  Receive Date: 20120809
  Receipt Date: 20120503
  Transmission Date: 20120928
  Serious: Yes (Other)
  Sender: FDA-Public Use
  Company Number: PHEH2012US015282

PATIENT

DRUGS (1)
  1. ZOMETA [Suspect]
     Indication: OSTEOPENIA

REACTIONS (1)
  - OSTEOPOROSIS [None]
